FAERS Safety Report 17539681 (Version 1)
Quarter: 2020Q1

REPORT INFORMATION
  Report Type: Spontaneous
  Country: US (occurrence: US)
  Receive Date: 20200313
  Receipt Date: 20200313
  Transmission Date: 20200409
  Serious: Yes (Other)
  Sender: FDA-Public Use
  Company Number: US-BAYER-2020-044302

PATIENT
  Age: 77 Year
  Sex: Female

DRUGS (2)
  1. AFRIN ORIGINAL [Suspect]
     Active Substance: OXYMETAZOLINE HYDROCHLORIDE
     Indication: HYPERSENSITIVITY
     Dosage: UNK, Q3HR
     Route: 055
  2. AFRIN ORIGINAL [Suspect]
     Active Substance: OXYMETAZOLINE HYDROCHLORIDE
     Indication: NASOPHARYNGITIS
     Dosage: UNK, BID
     Route: 055

REACTIONS (5)
  - Product odour abnormal [None]
  - Inappropriate schedule of product administration [Unknown]
  - Drug dependence [None]
  - Product use issue [Unknown]
  - Therapeutic response shortened [Unknown]
